FAERS Safety Report 6932194-8 (Version None)
Quarter: 2010Q3

REPORT INFORMATION
  Report Type: 
  Country: None (occurrence: None)
  Receive Date: 20100819
  Receipt Date: 20100714
  Transmission Date: 20110219
  Serious: Yes (Other)
  Sender: FDA-Public Use
  Company Number: US-PERRIGO-10US011327

PATIENT
  Sex: Female
  Weight: 81.633 kg

DRUGS (2)
  1. MICONAZOLE NITRATE SUPP 1200 MG 109 199 [Suspect]
     Indication: VULVOVAGINAL MYCOTIC INFECTION
     Dosage: ONE APPLICATION, SINGLE
     Route: 067
     Dates: start: 20100712, end: 20100712
  2. ANTIFUNGALS [Concomitant]
     Indication: VULVOVAGINAL MYCOTIC INFECTION
     Dosage: UNK
     Route: 048
     Dates: start: 20100713

REACTIONS (3)
  - HYPERSENSITIVITY [None]
  - VAGINAL HAEMORRHAGE [None]
  - VULVOVAGINAL BURNING SENSATION [None]
